FAERS Safety Report 19596956 (Version 1)
Quarter: 2021Q3

REPORT INFORMATION
  Report Type: Spontaneous
  Country: US (occurrence: US)
  Receive Date: 20210723
  Receipt Date: 20210723
  Transmission Date: 20211014
  Serious: Yes (Other)
  Sender: FDA-Public Use
  Company Number: US-LUPIN PHARMACEUTICALS INC.-2021-12558

PATIENT

DRUGS (7)
  1. HYDROXYZINE [Suspect]
     Active Substance: HYDROXYZINE HYDROCHLORIDE
     Indication: MECHANICAL URTICARIA
     Dosage: UNK
     Route: 065
  2. PREGABALIN. [Suspect]
     Active Substance: PREGABALIN
     Indication: MECHANICAL URTICARIA
     Dosage: UNK
     Route: 065
  3. LEVOCETIRIZINE [Suspect]
     Active Substance: LEVOCETIRIZINE
     Indication: MECHANICAL URTICARIA
     Dosage: UNK
     Route: 065
  4. CLOBETASOL [Suspect]
     Active Substance: CLOBETASOL
     Indication: MECHANICAL URTICARIA
     Dosage: UNK
     Route: 065
  5. DIPHENHYDRAMINE. [Suspect]
     Active Substance: DIPHENHYDRAMINE
     Indication: MECHANICAL URTICARIA
     Dosage: UNK
     Route: 065
  6. ALCLOMETASONE DIPROPIONATE. [Suspect]
     Active Substance: ALCLOMETASONE DIPROPIONATE
     Indication: MECHANICAL URTICARIA
     Dosage: UNK
     Route: 065
  7. OMALIZUMAB. [Concomitant]
     Active Substance: OMALIZUMAB
     Indication: MECHANICAL URTICARIA
     Dosage: 300 MILLIGRAM, RECEIVED TWO INJECTIONS
     Route: 058

REACTIONS (1)
  - Drug resistance [Unknown]
